FAERS Safety Report 4294733-8 (Version None)
Quarter: 2004Q1

REPORT INFORMATION
  Report Type: 
  Country: None (occurrence: None)
  Receive Date: 20040213
  Receipt Date: 20040202
  Transmission Date: 20041129
  Serious: Yes (Death)
  Sender: FDA-Public Use
  Company Number: FR-ROCHE-357721

PATIENT
  Age: 56 Year
  Sex: Female

DRUGS (7)
  1. CELLCEPT [Suspect]
     Indication: ORGAN TRANSPLANT
     Route: 042
     Dates: start: 20030927, end: 20031006
  2. TARGOCID [Concomitant]
     Indication: DRUG USE FOR UNKNOWN INDICATION
     Route: 065
  3. TAZOCILLINE [Concomitant]
     Indication: DRUG USE FOR UNKNOWN INDICATION
     Route: 065
  4. THYMOGLOBULIN [Concomitant]
     Indication: ORGAN TRANSPLANT
     Route: 042
     Dates: start: 20030930, end: 20031003
  5. ZOVIRAX INTRAVENOUS [Concomitant]
     Indication: PROPHYLACTIC CHEMOTHERAPY
     Dosage: FORM REPORTED AS LYOPHILISED
     Route: 042
     Dates: start: 20030930, end: 20031006
  6. SOLU-MEDROL [Concomitant]
     Indication: ORGAN TRANSPLANT
     Route: 042
     Dates: start: 20030930, end: 20031006
  7. CIFLOX [Concomitant]
     Indication: PROPHYLACTIC CHEMOTHERAPY
     Dosage: REPORTED AS INJECTABLE SOLUTION
     Route: 042
     Dates: start: 20030926, end: 20031006

REACTIONS (1)
  - BONE MARROW DEPRESSION [None]
